FAERS Safety Report 18572173 (Version 6)
Quarter: 2022Q2

REPORT INFORMATION
  Report Type: Report from Study
  Country: CA (occurrence: CA)
  Receive Date: 20201202
  Receipt Date: 20220621
  Transmission Date: 20220721
  Serious: Yes (Other)
  Sender: FDA-Public Use
  Company Number: NVSC2020CA252621

PATIENT
  Age: 69 Year
  Sex: Female

DRUGS (1)
  1. MAYZENT [Suspect]
     Active Substance: SIPONIMOD
     Indication: Secondary progressive multiple sclerosis
     Dosage: UNK
     Route: 048
     Dates: start: 20200910

REACTIONS (12)
  - Renal impairment [Unknown]
  - Facial pain [Unknown]
  - Neuralgia [Unknown]
  - Paraesthesia [Unknown]
  - Visual impairment [Unknown]
  - Gait disturbance [Unknown]
  - Pigmentation disorder [Unknown]
  - Vision blurred [Unknown]
  - Nausea [Recovering/Resolving]
  - Headache [Unknown]
  - Fatigue [Unknown]
  - Dizziness [Recovering/Resolving]

NARRATIVE: CASE EVENT DATE: 20200910
